FAERS Safety Report 25436702 (Version 1)
Quarter: 2025Q2

REPORT INFORMATION
  Report Type: Spontaneous
  Country: TW (occurrence: TW)
  Receive Date: 20250615
  Receipt Date: 20250615
  Transmission Date: 20250717
  Serious: Yes (Life-Threatening)
  Sender: BOEHRINGER INGELHEIM
  Company Number: TW-BoehringerIngelheim-2025-BI-076357

PATIENT
  Age: 72 Year
  Sex: Female

DRUGS (7)
  1. MIRAPEX [Suspect]
     Active Substance: PRAMIPEXOLE DIHYDROCHLORIDE
     Indication: Parkinson^s disease
  2. CELEBREX [Suspect]
     Active Substance: CELECOXIB
     Indication: Flank pain
     Dates: start: 202505, end: 202505
  3. CELEBREX [Suspect]
     Active Substance: CELECOXIB
     Dates: start: 20250604, end: 20250604
  4. BUTYLSCOPOLAMINE BROMIDE [Suspect]
     Active Substance: BUTYLSCOPOLAMINE BROMIDE
     Indication: Product used for unknown indication
  5. MEPHENOXALONE [Suspect]
     Active Substance: MEPHENOXALONE
     Indication: Product used for unknown indication
  6. ESTAZOLAM [Suspect]
     Active Substance: ESTAZOLAM
     Indication: Product used for unknown indication
  7. FLUNARIZINE [Suspect]
     Active Substance: FLUNARIZINE
     Indication: Product used for unknown indication

REACTIONS (3)
  - Anaphylactic shock [Recovered/Resolved]
  - Urinary tract infection [Not Recovered/Not Resolved]
  - Nephrolithiasis [Not Recovered/Not Resolved]

NARRATIVE: CASE EVENT DATE: 20250604
